FAERS Safety Report 6773911-X (Version None)
Quarter: 2010Q2

REPORT INFORMATION
  Report Type: 
  Country: None (occurrence: None)
  Receive Date: 20100615
  Receipt Date: 20100615
  Transmission Date: 20101027
  Serious: Yes (Other)
  Sender: FDA-Public Use
  Company Number: None

PATIENT
  Sex: Female
  Weight: 112.9457 kg

DRUGS (7)
  1. ULTRAM [Suspect]
     Indication: BACK PAIN
     Dosage: 50 MG - 100 MG EVERY 4 HR ORALLY
     Route: 048
     Dates: start: 20080901, end: 20080901
  2. ULTRAM [Suspect]
     Indication: DIABETES MELLITUS
     Dosage: 50 MG - 100 MG EVERY 4 HR ORALLY
     Route: 048
     Dates: start: 20080901, end: 20080901
  3. ULTRAM [Suspect]
     Indication: FIBROMYALGIA
     Dosage: 50 MG - 100 MG EVERY 4 HR ORALLY
     Route: 048
     Dates: start: 20080901, end: 20080901
  4. NEURONTIN [Suspect]
     Indication: BACK PAIN
     Dosage: 900 MG QD @ HS ORALLY
     Route: 048
     Dates: start: 20080901, end: 20080901
  5. NEURONTIN [Suspect]
     Indication: DIABETES MELLITUS
     Dosage: 900 MG QD @ HS ORALLY
     Route: 048
     Dates: start: 20080901, end: 20080901
  6. NEURONTIN [Suspect]
     Indication: FIBROMYALGIA
     Dosage: 900 MG QD @ HS ORALLY
     Route: 048
     Dates: start: 20080901, end: 20080901
  7. NEURONTIN [Suspect]
     Indication: NEUROPATHY PERIPHERAL
     Dosage: 900 MG QD @ HS ORALLY
     Route: 048
     Dates: start: 20080901, end: 20080901

REACTIONS (2)
  - DRUG INEFFECTIVE [None]
  - PRODUCT SUBSTITUTION ISSUE [None]
